FAERS Safety Report 17575910 (Version 1)
Quarter: 2020Q1

REPORT INFORMATION
  Report Type: Spontaneous
  Country: IT (occurrence: IT)
  Receive Date: 20200324
  Receipt Date: 20200324
  Transmission Date: 20200409
  Serious: Yes (Hospitalization)
  Sender: FDA-Public Use
  Company Number: IT-PFIZER INC-2020123730

PATIENT
  Age: 78 Year
  Sex: Female

DRUGS (3)
  1. FLUCONAZOLE. [Suspect]
     Active Substance: FLUCONAZOLE
     Indication: CANDIDA INFECTION
     Dosage: 200 ML, 1X/DAY
     Route: 042
     Dates: start: 20191206, end: 20191211
  2. LEVOTHYROXINE. [Concomitant]
     Active Substance: LEVOTHYROXINE
     Indication: HYPOTHYROIDISM
     Dosage: 125 UG, UNK
     Route: 048
  3. PRULIFLOXACIN [Concomitant]
     Active Substance: PRULIFLOXACIN
     Indication: URINARY TRACT INFECTION
     Dosage: 600 MG, UNK
     Route: 048
     Dates: start: 20191128, end: 20191211

REACTIONS (1)
  - Cardiac arrest [Recovered/Resolved]

NARRATIVE: CASE EVENT DATE: 20191211
